FAERS Safety Report 4473752-2 (Version None)
Quarter: 2004Q4

REPORT INFORMATION
  Report Type: 
  Country: None (occurrence: None)
  Receive Date: 20040907
  Receipt Date: 20031010
  Transmission Date: 20050328
  Serious: Yes (Other)
  Sender: FDA-Public Use
  Company Number: PHEH2003US09373

PATIENT
  Age: 69 Year
  Sex: Male
  Weight: 86.2 kg

DRUGS (11)
  1. NEORAL [Suspect]
     Indication: HEART TRANSPLANT
     Dosage: 50 MG, BID, ORAL
     Route: 048
     Dates: start: 20010430
  2. TAXOL [Concomitant]
  3. CLONIDINE [Concomitant]
  4. PREDNISONE [Concomitant]
  5. TIAZAC [Concomitant]
  6. CELLCEPT [Concomitant]
  7. VASOTEC [Concomitant]
  8. CARDIZEM [Concomitant]
  9. PLETAL [Concomitant]
  10. ZOCOR [Concomitant]
  11. CHEMOTHERAPEUTICS, OTHER (CHEMOTHERAPEUTICS,  OTHER) [Concomitant]

REACTIONS (6)
  - BRONCHIOLOALVEOLAR CARCINOMA [None]
  - DYSPNOEA [None]
  - FATIGUE [None]
  - OEDEMA PERIPHERAL [None]
  - PAIN IN EXTREMITY [None]
  - PARAESTHESIA [None]
